FAERS Safety Report 11721715 (Version 1)
Quarter: 2015Q4

REPORT INFORMATION
  Report Type: Other
  Country: JP (occurrence: JP)
  Receive Date: 20151111
  Receipt Date: 20151111
  Transmission Date: 20160304
  Serious: Yes (Death, Hospitalization)
  Sender: FDA-Public Use
  Company Number: JP-ACTELION-A-CH2015-126919

PATIENT
  Sex: Male

DRUGS (2)
  1. OXYGEN. [Concomitant]
     Active Substance: OXYGEN
  2. TRACLEER [Suspect]
     Active Substance: BOSENTAN
     Indication: PULMONARY ARTERIAL HYPERTENSION
     Route: 048

REACTIONS (7)
  - Pulmonary arterial hypertension [Fatal]
  - Pulmonary haemorrhage [Fatal]
  - Bronchial haemorrhage [Fatal]
  - Respiratory failure [Fatal]
  - Disease progression [Fatal]
  - Haemoptysis [Fatal]
  - Tracheal haemorrhage [Fatal]
